FAERS Safety Report 6172125-4 (Version None)
Quarter: 2009Q2

REPORT INFORMATION
  Report Type: 
  Country: None (occurrence: None)
  Receive Date: 20090429
  Receipt Date: 20090422
  Transmission Date: 20091009
  Serious: Yes (Hospitalization, Other)
  Sender: FDA-Public Use
  Company Number: US-ASTRAZENECA-2007UW02452

PATIENT
  Age: 52 Year
  Sex: Female
  Weight: 57.6 kg

DRUGS (13)
  1. SEROQUEL [Suspect]
     Indication: SCHIZOAFFECTIVE DISORDER
     Dosage: 50 MG- 900 MG
     Route: 048
     Dates: start: 20020301, end: 20070326
  2. SEROQUEL [Suspect]
     Indication: DEPRESSION
     Dosage: 50 MG- 900 MG
     Route: 048
     Dates: start: 20020301, end: 20070326
  3. ZYPREXA [Concomitant]
     Dates: start: 20020301
  4. RISPERDAL [Concomitant]
     Dosage: 2 MG- 3 MG
     Dates: start: 20040501, end: 20040601
  5. RISPERDAL [Concomitant]
     Dates: start: 20060801, end: 20060901
  6. ABILIFY [Concomitant]
     Dosage: 10 MG TO 30 MG
     Dates: start: 20060301, end: 20060701
  7. GEODON [Concomitant]
     Dates: start: 20040401, end: 20040901
  8. GEODON [Concomitant]
     Dates: start: 20070301, end: 20080101
  9. DEPAKOTE [Concomitant]
     Dates: start: 20050201
  10. ALPRAZOLAM [Concomitant]
     Dates: start: 20070101, end: 20080101
  11. LORAZEPAM [Concomitant]
  12. ZOLOFT [Concomitant]
     Dates: start: 20070201, end: 20070501
  13. DIAZEPAM [Concomitant]
     Dates: start: 20070101

REACTIONS (16)
  - CARDIAC FAILURE CONGESTIVE [None]
  - CEREBROVASCULAR ACCIDENT [None]
  - COAGULOPATHY [None]
  - DIABETES MELLITUS [None]
  - EXTRAPYRAMIDAL DISORDER [None]
  - GAIT DISTURBANCE [None]
  - GASTROENTERITIS SALMONELLA [None]
  - HEART VALVE OPERATION [None]
  - HYPERTENSION [None]
  - LUNG OPERATION [None]
  - MUSCULAR WEAKNESS [None]
  - PANCREATITIS [None]
  - PARKINSON'S DISEASE [None]
  - RESTLESS LEGS SYNDROME [None]
  - SURGERY [None]
  - TARDIVE DYSKINESIA [None]
